FAERS Safety Report 19741200 (Version 5)
Quarter: 2021Q3

REPORT INFORMATION
  Report Type: Report from Study
  Country: None (occurrence: ES)
  Receive Date: 20210825
  Receipt Date: 20210921
  Transmission Date: 20211014
  Serious: Yes (Hospitalization, Other)
  Sender: FDA-Public Use
  Company Number: ES-ABBVIE-21K-144-4050481-00

PATIENT
  Age: 76 Year
  Sex: Male

DRUGS (3)
  1. DUODOPA [Suspect]
     Active Substance: CARBIDOPA\LEVODOPA
     Dosage: CONTINUOUS DOSE LOWERED TO 4ML.
     Route: 050
     Dates: start: 20210907
  2. DUODOPA [Suspect]
     Active Substance: CARBIDOPA\LEVODOPA
     Route: 050
     Dates: start: 20160224, end: 20210907
  3. DUODOPA [Suspect]
     Active Substance: CARBIDOPA\LEVODOPA
     Indication: PARKINSON^S DISEASE
     Route: 050
     Dates: start: 20120224

REACTIONS (14)
  - Infection [Recovered/Resolved]
  - Weight decreased [Not Recovered/Not Resolved]
  - Device connection issue [Recovered/Resolved]
  - Bronchospasm [Not Recovered/Not Resolved]
  - Blood sodium increased [Recovered/Resolved]
  - Dysphagia [Recovering/Resolving]
  - Therapeutic product effect incomplete [Unknown]
  - Freezing phenomenon [Not Recovered/Not Resolved]
  - Hyperhidrosis [Recovering/Resolving]
  - Mobility decreased [Not Recovered/Not Resolved]
  - Agitation [Recovered/Resolved]
  - Anaemia [Not Recovered/Not Resolved]
  - Urinary tract infection [Recovered/Resolved]
  - Pyrexia [Recovered/Resolved]

NARRATIVE: CASE EVENT DATE: 2021
